FAERS Safety Report 8995935 (Version 1)
Quarter: 2013Q1

REPORT INFORMATION
  Report Type: Spontaneous
  Country: US (occurrence: US)
  Receive Date: 20130103
  Receipt Date: 20130103
  Transmission Date: 20140127
  Serious: Yes (Disabling, Other)
  Sender: FDA-Public Use
  Company Number: CHPA2012US025826

PATIENT
  Age: 53 Year
  Sex: Male

DRUGS (5)
  1. MAALOX ANTACID/ANTIGAS MAX QDTABS ASST [Suspect]
     Indication: GASTRIC DISORDER
     Dosage: 2 TO 4 DF, DAILY
     Route: 048
     Dates: start: 1980
  2. DRUG THERAPY NOS [Concomitant]
     Dosage: UNK, UNK
  3. DRUG THERAPY NOS [Concomitant]
     Dosage: UNK, UNK
  4. BABY ASPIRIN [Concomitant]
     Dosage: UNK, UNK
  5. CLARITIN [Concomitant]
     Dosage: UNK, UNK

REACTIONS (5)
  - Disability [Not Recovered/Not Resolved]
  - Neuropathy peripheral [Not Recovered/Not Resolved]
  - Fibromyalgia [Not Recovered/Not Resolved]
  - Off label use [Unknown]
  - Incorrect drug administration duration [Unknown]
